FAERS Safety Report 25458510 (Version 11)
Quarter: 2025Q4

REPORT INFORMATION
  Report Type: Report from Study
  Country: US (occurrence: US)
  Receive Date: 20250620
  Receipt Date: 20251104
  Transmission Date: 20260117
  Serious: Yes (Hospitalization, Other)
  Sender: AUROBINDO
  Company Number: US-AUROBINDO-AUR-APL-2025-030154

PATIENT
  Age: 79 Year
  Sex: Female

DRUGS (213)
  1. CYCLOPHOSPHAMIDE [Suspect]
     Active Substance: CYCLOPHOSPHAMIDE
     Indication: T-cell lymphoma stage III
     Dosage: 750 MILLIGRAM/SQ. METER (CYCLE 1 DAY 1)
     Route: 042
     Dates: start: 20250516, end: 20250516
  2. CYCLOPHOSPHAMIDE [Suspect]
     Active Substance: CYCLOPHOSPHAMIDE
     Dosage: 750 MILLIGRAM CYCLE 2 DAY 1
     Route: 065
     Dates: start: 20250610, end: 20250610
  3. CYCLOPHOSPHAMIDE [Suspect]
     Active Substance: CYCLOPHOSPHAMIDE
     Dosage: 562.5 MILLIGRAM CYCLE 2 DAY 1 (ACTUAL DOSE)
     Route: 065
     Dates: start: 20250610, end: 20250610
  4. CYCLOPHOSPHAMIDE [Suspect]
     Active Substance: CYCLOPHOSPHAMIDE
     Dosage: 562.5 MILLIGRAM CYCLE 3 DAY 1 (ACTUAL DOSE)
     Route: 065
     Dates: start: 20250724, end: 20250724
  5. CYCLOPHOSPHAMIDE [Suspect]
     Active Substance: CYCLOPHOSPHAMIDE
     Dosage: 562.5 MG/M2
     Route: 065
     Dates: start: 20250821, end: 20250821
  6. CYCLOPHOSPHAMIDE [Suspect]
     Active Substance: CYCLOPHOSPHAMIDE
     Dosage: 421.87 MG/M2
     Route: 065
     Dates: start: 20250911, end: 20250911
  7. PREDNISONE [Suspect]
     Active Substance: PREDNISONE
     Indication: T-cell lymphoma stage III
     Dosage: 100 MILLIGRAM, CYCLE 1 DAY 1
     Route: 048
     Dates: start: 20250516
  8. PREDNISONE [Suspect]
     Active Substance: PREDNISONE
     Dosage: 100 MILLIGRAM, CYCLE 1 DAY 2
     Route: 065
     Dates: start: 20250517
  9. PREDNISONE [Suspect]
     Active Substance: PREDNISONE
     Dosage: 100 MILLIGRAM, CYCLE 1 DAY 3
     Route: 065
     Dates: start: 20250518
  10. PREDNISONE [Suspect]
     Active Substance: PREDNISONE
     Dosage: 100 MILLIGRAM, CYCLE 1 DAY 4
     Route: 065
     Dates: start: 20250519
  11. PREDNISONE [Suspect]
     Active Substance: PREDNISONE
     Dosage: 100 MILLIGRAM, CYCLE 1 DAY 4
     Route: 065
     Dates: start: 20250520
  12. PREDNISONE [Suspect]
     Active Substance: PREDNISONE
     Dosage: 100 MILLIGRAM CYCLE 2 DAY 1
     Route: 065
     Dates: start: 20250603, end: 20250609
  13. PREDNISONE [Suspect]
     Active Substance: PREDNISONE
     Dosage: 100 MILLIGRAM CYCLE 2 DAY 1
     Route: 048
     Dates: start: 20250610
  14. PREDNISONE [Suspect]
     Active Substance: PREDNISONE
     Dosage: 100 MILLIGRAM CYCLE 2 DAY 2
     Route: 065
     Dates: start: 20250611
  15. PREDNISONE [Suspect]
     Active Substance: PREDNISONE
     Dosage: 50 MILLIGRAM
     Route: 065
     Dates: start: 20250821
  16. PREDNISONE [Suspect]
     Active Substance: PREDNISONE
     Dosage: 50 MILLIGRAM
     Route: 065
     Dates: start: 20250724
  17. PREDNISONE [Suspect]
     Active Substance: PREDNISONE
     Dosage: 100 MILLIGRAM CYCLE 2 DAY 2
     Route: 065
     Dates: start: 20250911
  18. DOXORUBICIN [Suspect]
     Active Substance: DOXORUBICIN
     Indication: T-cell lymphoma stage III
     Dosage: 25 MILLIGRAM/SQ. METER, CYCLE 1 DAY 1
     Route: 065
     Dates: start: 20250516, end: 20250516
  19. DOXORUBICIN [Suspect]
     Active Substance: DOXORUBICIN
     Dosage: 50 MG/M2
     Route: 042
     Dates: start: 20250516
  20. DOXORUBICIN [Suspect]
     Active Substance: DOXORUBICIN
     Dosage: 25 MILLIGRAM/SQ. METER, CYCLE 1 DAY 1
     Route: 065
     Dates: start: 20250610, end: 20250610
  21. DOXORUBICIN [Suspect]
     Active Substance: DOXORUBICIN
     Dosage: 18.75 MILLIGRAM/SQ. METER, CYCLE 1 DAY 1 (ACTUAL DOSE)
     Route: 065
     Dates: start: 20250610, end: 20250610
  22. DOXORUBICIN [Suspect]
     Active Substance: DOXORUBICIN
     Dosage: 37.5 MILLIGRAM/SQ. METER, CYCLE 3 DAY 1
     Route: 065
     Dates: start: 20250724, end: 20250724
  23. DOXORUBICIN [Suspect]
     Active Substance: DOXORUBICIN
     Dosage: 37.5 MILLIGRAM/SQ. METER, CYCLE 3 DAY 1
     Route: 065
     Dates: start: 20250821
  24. DOXORUBICIN [Suspect]
     Active Substance: DOXORUBICIN
     Dosage: 28.12 MILLIGRAM/SQ. METER
     Route: 065
     Dates: start: 20250911, end: 20250911
  25. VINCRISTINE [Suspect]
     Active Substance: VINCRISTINE
     Indication: Peripheral T-cell lymphoma unspecified
     Dosage: 1.4 MILLIGRAM
     Route: 065
     Dates: start: 20250516, end: 20250516
  26. VINCRISTINE [Suspect]
     Active Substance: VINCRISTINE
     Dosage: ON DAY 1 OF EACH 21 DAYS CYCLE
     Route: 042
     Dates: start: 20250610
  27. VINCRISTINE [Suspect]
     Active Substance: VINCRISTINE
     Dosage: 1.4 MILLIGRAM
     Route: 065
     Dates: start: 20250724, end: 20250724
  28. VINCRISTINE [Suspect]
     Active Substance: VINCRISTINE
     Dosage: 1.4 MILLIGRAM
     Route: 065
     Dates: start: 20250821
  29. VINCRISTINE [Suspect]
     Active Substance: VINCRISTINE
     Dosage: 1.5 MILLIGRAM
     Route: 065
     Dates: start: 20250911, end: 20250911
  30. ONCOVIN [Suspect]
     Active Substance: VINCRISTINE SULFATE
     Indication: T-cell lymphoma stage III
     Dosage: 1.4 MILLIGRAM/SQ. METER, CYCLE 1 DAY 1
     Route: 042
     Dates: start: 20250516, end: 20250516
  31. ONCOVIN [Suspect]
     Active Substance: VINCRISTINE SULFATE
     Dosage: UNK 1.5 MG/M SQUARE (ACTUAL DOSE)
     Route: 065
     Dates: start: 20250610, end: 20250610
  32. ONCOVIN [Suspect]
     Active Substance: VINCRISTINE SULFATE
     Dosage: UNK 1.4 MG/M SQUARE (CYCLE 2 DAY 1)
     Route: 065
     Dates: start: 20250610
  33. ONCOVIN [Suspect]
     Active Substance: VINCRISTINE SULFATE
     Dosage: UNK 1.4 MG/M SQUARE, CYCLE 3 DAY 1
     Route: 065
     Dates: start: 20250724, end: 20250724
  34. ONCOVIN [Suspect]
     Active Substance: VINCRISTINE SULFATE
     Dosage: 1.4 MG/M2
     Route: 065
     Dates: start: 20250821
  35. AMLODIPINE [Concomitant]
     Active Substance: AMLODIPINE BESYLATE
     Indication: Product used for unknown indication
     Dosage: 10 MILLIGRAM, DAILY
     Route: 048
     Dates: start: 20220922
  36. AMLODIPINE [Concomitant]
     Active Substance: AMLODIPINE BESYLATE
     Indication: Hypertension
     Dosage: 5 MILLIGRAM, ONCE A DAY
     Route: 048
     Dates: start: 20250618
  37. FOLIC ACID [Concomitant]
     Active Substance: FOLIC ACID
     Indication: T-cell lymphoma stage III
     Dosage: 1 MILLIGRAM, DAILY
     Route: 048
     Dates: start: 20250508, end: 20250516
  38. FOLIC ACID [Concomitant]
     Active Substance: FOLIC ACID
     Dosage: 1 MILLIGRAM, DAILY
     Route: 048
     Dates: start: 20250831
  39. ESCITALOPRAM [Concomitant]
     Active Substance: ESCITALOPRAM OXALATE
     Indication: Anxiety
     Dosage: 10 MILLIGRAM, DAILY
     Route: 048
     Dates: start: 2005
  40. MIRTAZAPINE [Concomitant]
     Active Substance: MIRTAZAPINE
     Indication: Insomnia
     Dosage: 30 MILLIGRAM, DAILY
     Route: 048
     Dates: start: 20240501, end: 20250805
  41. MIRTAZAPINE [Concomitant]
     Active Substance: MIRTAZAPINE
     Dosage: 45 MILLIGRAM, ONCE A DAY
     Route: 048
     Dates: start: 20250524, end: 20250529
  42. MIRTAZAPINE [Concomitant]
     Active Substance: MIRTAZAPINE
     Dosage: 45 MILLIGRAM, ONCE A DAY
     Route: 048
     Dates: start: 20250605
  43. MIRTAZAPINE [Concomitant]
     Active Substance: MIRTAZAPINE
     Dosage: 45 MILLIGRAM, ONCE A DAY
     Route: 048
     Dates: start: 20250827, end: 20250830
  44. MIRTAZAPINE [Concomitant]
     Active Substance: MIRTAZAPINE
     Dosage: 45 MILLIGRAM, ONCE A DAY
     Route: 048
     Dates: start: 20250917
  45. SIMVASTATIN [Concomitant]
     Active Substance: SIMVASTATIN
     Indication: Hyperlipidaemia
     Dosage: 80 MILLIGRAM, DAILY
     Route: 048
     Dates: start: 20250506
  46. SODIUM CHLORIDE [Concomitant]
     Active Substance: SODIUM CHLORIDE
     Indication: Prophylaxis
     Dosage: 100 ML/HR, CONTINUOUS
     Route: 042
     Dates: start: 20250505, end: 20250521
  47. SODIUM CHLORIDE [Concomitant]
     Active Substance: SODIUM CHLORIDE
     Dosage: 75 ML/HR UNK
     Route: 042
     Dates: start: 20250523, end: 20250526
  48. SODIUM CHLORIDE [Concomitant]
     Active Substance: SODIUM CHLORIDE
     Dosage: UNK (75 ML/HR SOLUTION)
     Route: 042
     Dates: start: 20250614, end: 20250614
  49. SODIUM CHLORIDE [Concomitant]
     Active Substance: SODIUM CHLORIDE
     Dosage: 1000 MILLILITER
     Route: 042
     Dates: start: 20250605, end: 20250605
  50. ACETAMINOPHEN [Concomitant]
     Active Substance: ACETAMINOPHEN
     Indication: Spinal pain
     Dosage: 650 MILLIGRAM, AS NECESSARY
     Route: 048
     Dates: start: 20250506
  51. ACETAMINOPHEN [Concomitant]
     Active Substance: ACETAMINOPHEN
     Dosage: 650 MILLIGRAM, AS NECESSARY
     Route: 048
     Dates: start: 20250811
  52. ACETAMINOPHEN [Concomitant]
     Active Substance: ACETAMINOPHEN
     Dosage: 650 MILLIGRAM, AS NECESSARY
     Route: 048
     Dates: start: 20250827
  53. ACETAMINOPHEN [Concomitant]
     Active Substance: ACETAMINOPHEN
     Dosage: 650 MILLIGRAM, AS NECESSARY
     Route: 048
     Dates: start: 20250918
  54. ALLOPURINOL [Concomitant]
     Active Substance: ALLOPURINOL
     Indication: Hyperuricaemia
     Dosage: 100 MILLIGRAM, TWO TIMES A DAY
     Route: 048
     Dates: start: 20250506
  55. ALLOPURINOL [Concomitant]
     Active Substance: ALLOPURINOL
     Dosage: 100 MILLIGRAM, TWO TIMES A DAY
     Route: 048
     Dates: start: 20250821
  56. FUROSEMIDE [Concomitant]
     Active Substance: FUROSEMIDE
     Indication: Pleural effusion
     Dosage: 40 MILLIGRAM, DAILY
     Route: 048
     Dates: start: 20250506
  57. PANTOPRAZOLE [Concomitant]
     Active Substance: PANTOPRAZOLE
     Indication: Gastrooesophageal reflux disease
     Dosage: 40 MILLIGRAM, DAILY
     Route: 048
     Dates: start: 20250506
  58. CLOBETASOL [Concomitant]
     Active Substance: CLOBETASOL
     Indication: Petechiae
     Dosage: 0.05 PERCENT, TWO TIMES A DAY
     Route: 061
     Dates: start: 20250506
  59. ONDANSETRON [Concomitant]
     Active Substance: ONDANSETRON
     Indication: Prophylaxis of nausea and vomiting
     Dosage: 4 MILLIGRAM, AS NECESSARY
     Route: 048
     Dates: start: 20250506
  60. ONDANSETRON [Concomitant]
     Active Substance: ONDANSETRON
     Dosage: 4 MILLIGRAM, AS NECESSARY
     Route: 048
     Dates: start: 20250831, end: 20250831
  61. HYDROCODONE BITARTRATE AND ACETAMINOPHEN [Concomitant]
     Active Substance: ACETAMINOPHEN\HYDROCODONE BITARTRATE
     Indication: Spinal pain
     Dosage: 5-325 MILLIGRAMS, AS NEEDED
     Route: 048
     Dates: start: 20250507
  62. HYDROCODONE BITARTRATE AND ACETAMINOPHEN [Concomitant]
     Active Substance: ACETAMINOPHEN\HYDROCODONE BITARTRATE
     Dosage: 5-325 MILLIGRAMS, AS NEEDED
     Route: 048
     Dates: start: 20250625
  63. HYDROCODONE BITARTRATE AND ACETAMINOPHEN [Concomitant]
     Active Substance: ACETAMINOPHEN\HYDROCODONE BITARTRATE
     Dosage: 1 DOSAGE FORM, EVERY FOUR HOUR
     Route: 048
     Dates: start: 20250827
  64. METHYLPREDNISOLONE SODIUM SUCCINATE [Concomitant]
     Active Substance: METHYLPREDNISOLONE SODIUM SUCCINATE
     Indication: Lymphadenopathy
     Dosage: 250 MILLIGRAM, FOUR TIMES/DAY
     Route: 042
     Dates: start: 20250508, end: 20250514
  65. METHYLPREDNISOLONE SODIUM SUCCINATE [Concomitant]
     Active Substance: METHYLPREDNISOLONE SODIUM SUCCINATE
     Dosage: 60 MILLIGRAM, FOUR TIMES/DAY
     Route: 042
     Dates: start: 20250510, end: 20250510
  66. MAGNESIUM SULFATE [Concomitant]
     Active Substance: MAGNESIUM SULFATE
     Indication: Hypomagnesaemia
     Dosage: 2 GRAM, AS NECESSARY
     Route: 042
     Dates: start: 20250508, end: 20250530
  67. MAGNESIUM SULFATE [Concomitant]
     Active Substance: MAGNESIUM SULFATE
     Dosage: 2 GRAM, AS NECESSARY
     Route: 042
     Dates: start: 20250606, end: 20250623
  68. MICONAZOLE [Concomitant]
     Active Substance: MICONAZOLE
     Indication: Petechiae
     Dosage: 2 PERCENT, TWO TIMES A DAY
     Route: 061
     Dates: start: 20250509
  69. INSULIN GLARGINE [Concomitant]
     Active Substance: INSULIN GLARGINE
     Indication: Hyperglycaemia
     Dosage: 14 INTERNATIONAL UNIT, DAILY
     Route: 058
     Dates: start: 20250510, end: 20250510
  70. MUPIROCIN [Concomitant]
     Active Substance: MUPIROCIN
     Indication: Infection prophylaxis
     Dosage: 0.5 GRAM, TWO TIMES A DAY
     Route: 045
     Dates: start: 20250510
  71. MUPIROCIN [Concomitant]
     Active Substance: MUPIROCIN
     Dosage: 0.5 GRAM, TWO TIMES A DAY
     Route: 045
     Dates: start: 20250827
  72. DIPHENHYDRAMINE [Concomitant]
     Active Substance: DIPHENHYDRAMINE
     Indication: Premedication
     Dosage: 25 MILLIGRAM, AS DIRECTED
     Route: 042
     Dates: start: 20250512
  73. DIPHENHYDRAMINE [Concomitant]
     Active Substance: DIPHENHYDRAMINE
     Dosage: 12.5 MILLIGRAM, AS NECESSARY
     Route: 042
     Dates: start: 20250617, end: 20250617
  74. DIPHENHYDRAMINE [Concomitant]
     Active Substance: DIPHENHYDRAMINE
     Dosage: 12.5 MILLIGRAM, AS NECESSARY
     Route: 042
     Dates: start: 20250827
  75. OLANZAPINE [Concomitant]
     Active Substance: OLANZAPINE
     Indication: Insomnia
     Dosage: 2.5 MILLIGRAM, DAILY
     Route: 048
     Dates: start: 20250512, end: 20250513
  76. POTASSIUM CHLORIDE [Concomitant]
     Active Substance: POTASSIUM CHLORIDE
     Indication: Hypokalaemia
     Dosage: 40 MEQ, AS NEEDED
     Route: 048
     Dates: start: 20250513
  77. POTASSIUM CHLORIDE [Concomitant]
     Active Substance: POTASSIUM CHLORIDE
     Dosage: 10 UNK (10 MEQ) SOLUTION
     Route: 042
     Dates: start: 20250619, end: 20250622
  78. POTASSIUM CHLORIDE [Concomitant]
     Active Substance: POTASSIUM CHLORIDE
     Dosage: UNK (20 MEQ SOLUTION) AS NEEDED
     Route: 042
     Dates: start: 20250607, end: 20250617
  79. POTASSIUM CHLORIDE [Concomitant]
     Active Substance: POTASSIUM CHLORIDE
     Dosage: UNK (20 MEQ TABLET)
     Route: 048
     Dates: start: 20250606, end: 20250617
  80. POTASSIUM CHLORIDE [Concomitant]
     Active Substance: POTASSIUM CHLORIDE
     Dosage: 10 UNK (10 MEQ) SOLUTION
     Route: 042
     Dates: start: 20250619, end: 20250621
  81. LORAZEPAM [Concomitant]
     Active Substance: LORAZEPAM
     Indication: Anxiety
     Dosage: 1 MILLIGRAM, AS NECESSARY
     Route: 048
     Dates: start: 20250513, end: 20250521
  82. LORAZEPAM [Concomitant]
     Active Substance: LORAZEPAM
     Dosage: 0.5 MILLIGRAM, AS NECESSARY
     Route: 048
     Dates: start: 20250607, end: 20250625
  83. HYDRALAZINE [Concomitant]
     Active Substance: HYDRALAZINE HYDROCHLORIDE
     Indication: Hypertension
     Dosage: 5 MILLIGRAM, AS NECESSARY
     Route: 042
     Dates: start: 20250515, end: 20250530
  84. HYDRALAZINE [Concomitant]
     Active Substance: HYDRALAZINE HYDROCHLORIDE
     Dosage: 10 MILLIGRAM, ONCE A DAY
     Route: 042
     Dates: start: 20250523, end: 20250523
  85. HYDRALAZINE [Concomitant]
     Active Substance: HYDRALAZINE HYDROCHLORIDE
     Dosage: 5 MILLIGRAM, AS NECESSARY
     Route: 042
     Dates: start: 20250613, end: 20250614
  86. HYDRALAZINE [Concomitant]
     Active Substance: HYDRALAZINE HYDROCHLORIDE
     Dosage: 10 MILLIGRAM
     Route: 042
     Dates: start: 20250615
  87. MORPHINE [Concomitant]
     Active Substance: MORPHINE
     Indication: Pain
     Dosage: 2 MILLIGRAM, AS NECESSARY
     Route: 042
     Dates: start: 20250521, end: 20250525
  88. MORPHINE [Concomitant]
     Active Substance: MORPHINE
     Dosage: 2 MILLIGRAM, EVERY FOUR HOUR
     Route: 042
     Dates: start: 20250828, end: 20250831
  89. QUETIAPINE FUMARATE [Concomitant]
     Active Substance: QUETIAPINE FUMARATE
     Indication: Insomnia
     Dosage: 25 MILLIGRAM, ONCE A DAY
     Route: 048
     Dates: start: 20250521, end: 20250522
  90. LISINOPRIL [Concomitant]
     Active Substance: LISINOPRIL
     Indication: Hypertension
     Dosage: 5 MILLIGRAM, ONCE A DAY
     Route: 048
     Dates: start: 20250521, end: 20250530
  91. LISINOPRIL [Concomitant]
     Active Substance: LISINOPRIL
     Dosage: 5 MILLIGRAM, ONCE A DAY
     Route: 048
     Dates: start: 20250606, end: 20250607
  92. LISINOPRIL [Concomitant]
     Active Substance: LISINOPRIL
     Dosage: 10 MILLIGRAM
     Route: 048
     Dates: start: 20250608, end: 20250614
  93. LISINOPRIL [Concomitant]
     Active Substance: LISINOPRIL
     Dosage: 20 MILLIGRAM
     Route: 048
     Dates: start: 20250615, end: 20250617
  94. LISINOPRIL [Concomitant]
     Active Substance: LISINOPRIL
     Dosage: 40 MILLIGRAM, ONCE A DAY
     Route: 048
     Dates: start: 20250618
  95. LISINOPRIL [Concomitant]
     Active Substance: LISINOPRIL
     Dosage: 5 MILLIGRAM, ONCE A DAY
     Route: 048
     Dates: start: 20250917
  96. FILGRASTIM [Concomitant]
     Active Substance: FILGRASTIM
     Indication: Infection prophylaxis
     Dosage: 480 MILLIGRAM
     Route: 058
     Dates: start: 20250521, end: 20250522
  97. FILGRASTIM [Concomitant]
     Active Substance: FILGRASTIM
     Dosage: 600 MICROGRAM
     Route: 058
     Dates: start: 20250523, end: 20250527
  98. FILGRASTIM [Concomitant]
     Active Substance: FILGRASTIM
     Dosage: 600 MICROGRAM
     Route: 058
     Dates: start: 20250618, end: 20250620
  99. CARBOXYMETHYLCELLULOSE SODIUM\DEVICE\SORBINICATE [Concomitant]
     Active Substance: CARBOXYMETHYLCELLULOSE SODIUM\DEVICE\SORBINICATE
     Indication: Oral pain
     Dosage: 4 MILLILITER, AS NECESSARY
     Route: 048
     Dates: start: 20250522, end: 20250523
  100. CARBOXYMETHYLCELLULOSE SODIUM\DEVICE\SORBINICATE [Concomitant]
     Active Substance: CARBOXYMETHYLCELLULOSE SODIUM\DEVICE\SORBINICATE
     Dosage: 4 MILLILITER (AS NEEDED)
     Route: 048
     Dates: start: 20250617
  101. LOPERAMIDE [Concomitant]
     Active Substance: LOPERAMIDE
     Indication: Diarrhoea
     Dosage: 2 MILLIGRAM, FOUR TIMES/DAY
     Route: 048
     Dates: start: 20250522, end: 20250523
  102. LOPERAMIDE [Concomitant]
     Active Substance: LOPERAMIDE
     Dosage: 2 MILLIGRAM, AS NECESSARY
     Route: 048
     Dates: start: 20250617, end: 20250621
  103. LOPERAMIDE [Concomitant]
     Active Substance: LOPERAMIDE
     Dosage: 2 MILLIGRAM, FOUR TIMES/DAY
     Route: 048
     Dates: start: 20250622
  104. FLUCONAZOLE [Concomitant]
     Active Substance: FLUCONAZOLE
     Indication: Prophylaxis
     Dosage: 400 MILLIGRAM, ONCE A DAY
     Route: 048
     Dates: start: 20250522, end: 20250523
  105. FLUCONAZOLE [Concomitant]
     Active Substance: FLUCONAZOLE
     Dosage: 400 MILLIGRAM, ONCE A DAY
     Route: 042
     Dates: start: 20250524, end: 20250525
  106. LEVOFLOXACIN [Concomitant]
     Active Substance: LEVOFLOXACIN
     Indication: Prophylaxis
     Dosage: 500 MILLIGRAM, ONCE A DAY
     Route: 048
     Dates: start: 20250522, end: 20250522
  107. ACYCLOVIR [Concomitant]
     Active Substance: ACYCLOVIR
     Indication: Prophylaxis
     Dosage: 400 MILLIGRAM, TWO TIMES A DAY
     Route: 048
     Dates: start: 20250522, end: 20250523
  108. DIPHENHYDRAMINE [Concomitant]
     Active Substance: DIPHENHYDRAMINE
     Indication: Insomnia
     Dosage: 12.5 MILLIGRAM, ONCE
     Route: 042
     Dates: start: 20250523, end: 20250523
  109. DIPHENHYDRAMINE [Concomitant]
     Active Substance: DIPHENHYDRAMINE
     Indication: Premedication
     Dosage: 12.5 MILLIGRAM, ONCE
     Route: 042
     Dates: start: 20250617, end: 20250617
  110. DIPHENHYDRAMINE [Concomitant]
     Active Substance: DIPHENHYDRAMINE
     Dosage: 25 MILLIGRAM (AS NEEDED)
     Route: 042
     Dates: start: 20250615
  111. DIPHENHYDRAMINE [Concomitant]
     Active Substance: DIPHENHYDRAMINE
     Dosage: 25 MILLIGRAM (AS NEEDED)
     Route: 042
     Dates: start: 20250512
  112. DIPHENHYDRAMINE [Concomitant]
     Active Substance: DIPHENHYDRAMINE
     Dosage: 25 MILLIGRAM (AS NEEDED)
     Route: 042
     Dates: start: 20250918
  113. CHLORHEXIDINE [Concomitant]
     Active Substance: CHLORHEXIDINE
     Indication: Infection prophylaxis
     Dosage: 15 MILLILITER, TWO TIMES A DAY
     Route: 048
     Dates: start: 20250525, end: 20250530
  114. CHLORHEXIDINE [Concomitant]
     Active Substance: CHLORHEXIDINE
     Indication: Oral pain
     Dosage: 15 MILLILITER (SOLUTION)
     Route: 048
     Dates: start: 20250609, end: 20250618
  115. CHLORHEXIDINE [Concomitant]
     Active Substance: CHLORHEXIDINE
     Dosage: 15 MILLILITER, TWO TIMES A DAY
     Route: 048
     Dates: start: 20250626, end: 20250627
  116. MAGNESIUM SULFATE [Concomitant]
     Active Substance: MAGNESIUM SULFATE
     Indication: Hypomagnesaemia
     Dosage: 2 GRAM, AS NECESSARY
     Route: 042
     Dates: start: 20250527, end: 20250527
  117. MAGNESIUM SULFATE [Concomitant]
     Active Substance: MAGNESIUM SULFATE
     Dosage: 2 GRAM
     Route: 042
     Dates: start: 20250606, end: 20250623
  118. MAGNESIUM SULFATE [Concomitant]
     Active Substance: MAGNESIUM SULFATE
     Dosage: 2 GRAM
     Route: 042
     Dates: start: 20250609, end: 20250609
  119. MAGNESIUM SULFATE [Concomitant]
     Active Substance: MAGNESIUM SULFATE
     Dosage: 2 GRAM, AS NECESSARY
     Route: 042
     Dates: start: 20250811, end: 20250812
  120. MAGNESIUM SULFATE [Concomitant]
     Active Substance: MAGNESIUM SULFATE
     Dosage: 2 GRAM
     Route: 042
     Dates: start: 20250815
  121. MAGNESIUM SULFATE [Concomitant]
     Active Substance: MAGNESIUM SULFATE
     Dosage: 2 GRAM, AS NECESSARY
     Route: 042
     Dates: start: 20250828, end: 20250831
  122. MAGNESIUM SULFATE [Concomitant]
     Active Substance: MAGNESIUM SULFATE
     Dosage: 2 GRAM, ONCE A DAY
     Route: 042
     Dates: start: 20250911, end: 20250911
  123. MAGNESIUM SULFATE [Concomitant]
     Active Substance: MAGNESIUM SULFATE
     Dosage: 2 GRAM, AS NECESSARY
     Route: 042
     Dates: start: 20250917
  124. ALTEPLASE [Concomitant]
     Active Substance: ALTEPLASE
     Indication: Prophylaxis
     Dosage: 1 MILLIGRAM
     Route: 042
     Dates: start: 20250527, end: 20250527
  125. ALTEPLASE [Concomitant]
     Active Substance: ALTEPLASE
     Dosage: 1 MILLIGRAM
     Route: 042
     Dates: start: 20250830, end: 20250830
  126. MIRTAZAPINE [Concomitant]
     Active Substance: MIRTAZAPINE
     Indication: Insomnia
     Dosage: 45 MILLIGRAM
     Route: 048
     Dates: start: 20250605
  127. HYDROCODONE BITARTRATE AND ACETAMINOPHEN [Concomitant]
     Active Substance: ACETAMINOPHEN\HYDROCODONE BITARTRATE
     Indication: Pain
     Dosage: 5.325 MILLIGRAM
     Route: 048
     Dates: start: 20250608, end: 20250619
  128. HYDROCODONE BITARTRATE AND ACETAMINOPHEN [Concomitant]
     Active Substance: ACETAMINOPHEN\HYDROCODONE BITARTRATE
     Dosage: 5.325 MILLIGRAM
     Dates: start: 20250626, end: 20250627
  129. HYDROCODONE BITARTRATE AND ACETAMINOPHEN [Concomitant]
     Active Substance: ACETAMINOPHEN\HYDROCODONE BITARTRATE
     Dosage: 5.325 MILLIGRAM
     Route: 065
     Dates: start: 20250507
  130. HYDROCODONE BITARTRATE AND ACETAMINOPHEN [Concomitant]
     Active Substance: ACETAMINOPHEN\HYDROCODONE BITARTRATE
     Dosage: 5.325 MILLIGRAM
     Route: 048
     Dates: start: 20250625, end: 20250625
  131. DIPHENOXYLATE HYDROCHLORIDE AND ATROPINE SULFATE [Concomitant]
     Active Substance: ATROPINE SULFATE\DIPHENOXYLATE HYDROCHLORIDE
     Indication: Diarrhoea
     Dosage: UNK (1 OTHER TABLET)
     Route: 048
     Dates: start: 20250606, end: 20250607
  132. DIPHENOXYLATE HYDROCHLORIDE AND ATROPINE SULFATE [Concomitant]
     Active Substance: ATROPINE SULFATE\DIPHENOXYLATE HYDROCHLORIDE
     Dosage: UNK UNK, FOUR TIMES/DAY (1 OTHER TABLET)
     Route: 048
     Dates: start: 20250607, end: 20250609
  133. DICYCLOMINE [Concomitant]
     Active Substance: DICYCLOMINE HYDROCHLORIDE
     Indication: Diarrhoea
     Dosage: 20 MILLIGRAM, FOUR TIMES/DAY
     Route: 048
     Dates: start: 20250607, end: 20250625
  134. GUAIFENESIN [Concomitant]
     Active Substance: GUAIFENESIN
     Indication: Cough
     Dosage: 600 MILLIGRAM, TWO TIMES A DAY
     Route: 048
     Dates: start: 20250607, end: 20250725
  135. TRIMETHOPRIM [Concomitant]
     Active Substance: TRIMETHOPRIM
     Indication: Conjunctivitis
     Dosage: 2 DROP, FOUR TIMES/DAY
     Dates: start: 20250607, end: 20250608
  136. TRIMETHOPRIM [Concomitant]
     Active Substance: TRIMETHOPRIM
     Dosage: 2 DROP (FOUR TIMES A DAY)
     Dates: start: 20250608, end: 20250615
  137. BUMETANIDE [Concomitant]
     Active Substance: BUMETANIDE
     Indication: Oedema peripheral
     Dosage: 2 MILLIGRAM ONCE
     Route: 042
     Dates: start: 20250609, end: 20250609
  138. POTASSIUM PHOSPHATES [Concomitant]
     Active Substance: POTASSIUM PHOSPHATE, DIBASIC\POTASSIUM PHOSPHATE, MONOBASIC
     Indication: Hypokalaemia
     Dosage: 10 MILLIMOLE ONCE
     Route: 042
     Dates: start: 20250609, end: 20250609
  139. PHOSPHORUS [Concomitant]
     Active Substance: PHOSPHORUS
     Indication: Hypophosphataemia
     Dosage: 2 DOSAGE FORM, AS NECESSARY
     Route: 048
     Dates: start: 20250620, end: 20250724
  140. APREPITANT [Concomitant]
     Active Substance: APREPITANT
     Indication: Prophylaxis of nausea and vomiting
     Dosage: 130 MILLIGRAM, ONCE A DAY
     Route: 042
     Dates: start: 20250610, end: 20250610
  141. PALONOSETRON [Concomitant]
     Active Substance: PALONOSETRON
     Indication: Prophylaxis of nausea and vomiting
     Dosage: 0.25 MILLIGRAM, ONCE A DAY
     Route: 042
     Dates: start: 20250610, end: 20250610
  142. OXYCODONE AND ACETAMINOPHEN [Concomitant]
     Active Substance: ACETAMINOPHEN\OXYCODONE HYDROCHLORIDE
     Indication: Abdominal pain
     Dosage: 5.325 MILLIGRAM (AS NEEDED)
     Route: 048
     Dates: start: 20250614
  143. PHYTONADIONE [Concomitant]
     Active Substance: PHYTONADIONE
     Indication: Rectal haemorrhage
     Dosage: 10 MILLIGRAM, ONCE A DAY
     Route: 048
     Dates: start: 20250615, end: 20250615
  144. OCTREOTIDE [Concomitant]
     Active Substance: OCTREOTIDE
     Indication: Diarrhoea
     Dosage: 100 MICROGRAM, 3 TIMES A DAY
     Route: 058
     Dates: start: 20250616, end: 20250617
  145. OCTREOTIDE [Concomitant]
     Active Substance: OCTREOTIDE
     Dosage: 300 MICROGRAM, ONCE A DAY
     Route: 058
     Dates: start: 20250617, end: 20250625
  146. ONDANSETRON [Concomitant]
     Active Substance: ONDANSETRON
     Indication: Nausea
     Dosage: 4 MILLIGRAM, AS NECESSARY
     Route: 042
     Dates: start: 20250616, end: 20250626
  147. ONDANSETRON [Concomitant]
     Active Substance: ONDANSETRON
     Dosage: UNK
     Route: 065
     Dates: start: 20250506
  148. ONDANSETRON [Concomitant]
     Active Substance: ONDANSETRON
     Dosage: 4 MILLIGRAM, AS NECESSARY
     Route: 042
     Dates: start: 20250815, end: 20250815
  149. LOPERAMIDE [Concomitant]
     Active Substance: LOPERAMIDE
     Indication: Diarrhoea
     Dosage: 2 MILLIGRAM, FOUR TIMES/DAY
     Route: 048
     Dates: start: 20250518, end: 20250523
  150. LOPERAMIDE [Concomitant]
     Active Substance: LOPERAMIDE
     Dosage: 2 MILLIGRAM, FOUR TIMES/DAY
     Route: 048
     Dates: start: 20250617, end: 20250621
  151. LOPERAMIDE [Concomitant]
     Active Substance: LOPERAMIDE
     Dosage: 2 MILLIGRAM, FOUR TIMES/DAY
     Route: 048
     Dates: start: 20250528, end: 20250530
  152. LOPERAMIDE [Concomitant]
     Active Substance: LOPERAMIDE
     Dosage: 2 MILLIGRAM, ONCE A DAY
     Route: 048
     Dates: start: 20250622
  153. METRONIDAZOLE [Concomitant]
     Active Substance: METRONIDAZOLE
     Indication: Diarrhoea
     Dosage: 500 MILLIGRAM, 3 TIMES A DAY
     Route: 042
     Dates: start: 20250617, end: 20250625
  154. METRONIDAZOLE [Concomitant]
     Active Substance: METRONIDAZOLE
     Dosage: 500 MILLIGRAM, 3 TIMES A DAY
     Route: 048
     Dates: start: 20250626
  155. COLESTIPOL [Concomitant]
     Active Substance: COLESTIPOL
     Indication: Hypercholesterolaemia
     Dosage: 2 GRAM
     Route: 048
     Dates: start: 20250618
  156. COLESTIPOL [Concomitant]
     Active Substance: COLESTIPOL
     Dosage: 2 GRAM, TWO TIMES A DAY
     Route: 048
     Dates: start: 20250618
  157. FUROSEMIDE [Concomitant]
     Active Substance: FUROSEMIDE
     Indication: Oedema peripheral
     Dosage: 20 MILLIGRAM, DAILY
     Route: 042
     Dates: start: 20250618, end: 20250620
  158. Balsam Peru + Castor oil [Concomitant]
     Indication: Pain in extremity
     Dosage: 1 DOSAGE FORM, TWO TIMES A DAY
     Route: 061
     Dates: start: 20250619
  159. BARRIER CREAM [Concomitant]
     Active Substance: ZINC OXIDE
     Indication: Ulcer
     Dosage: 1 DOSAGE FORM, 3 TIMES A DAY
     Route: 061
     Dates: start: 20250619
  160. Calcium gluconate and sodium chloride [Concomitant]
     Indication: Hypocalcaemia
     Dosage: 2 GRAM
     Route: 042
     Dates: start: 20250619, end: 20250619
  161. Calcium gluconate and sodium chloride [Concomitant]
     Dosage: 2 GRAM
     Route: 042
     Dates: start: 20250525, end: 20250525
  162. Calcium gluconate and sodium chloride [Concomitant]
     Dosage: 2 GRAM
     Route: 042
     Dates: start: 20250527, end: 20250527
  163. DOCUSATE SODIUM [Concomitant]
     Active Substance: DOCUSATE SODIUM
     Indication: Constipation prophylaxis
     Dosage: 100 MILLIGRAM, TWO TIMES A DAY
     Route: 048
     Dates: start: 20250626, end: 20250626
  164. DOCUSATE SODIUM [Concomitant]
     Active Substance: DOCUSATE SODIUM
     Dosage: 100 MILLIGRAM, TWO TIMES A DAY
     Route: 048
     Dates: start: 20250827, end: 20250827
  165. ENOXAPARIN [Concomitant]
     Active Substance: ENOXAPARIN
     Indication: Thrombosis prophylaxis
     Dosage: 40 MILLIGRAM, ONCE A DAY
     Route: 058
     Dates: start: 20250626, end: 20250627
  166. METRONIDAZOLE [Concomitant]
     Active Substance: METRONIDAZOLE
     Indication: Product used for unknown indication
     Dosage: 500 MILLIGRAM, 3 TIMES A DAY
     Route: 048
     Dates: start: 20250626
  167. DIPHENHYDRAMINE HYDROCHLORIDE\LIDOCAINE HYDROCHLORIDE\NYSTATIN [Concomitant]
     Active Substance: DIPHENHYDRAMINE HYDROCHLORIDE\LIDOCAINE HYDROCHLORIDE\NYSTATIN
     Indication: Oral pain
     Dosage: 15 MILLILITER, FOUR TIMES/DAY
     Route: 048
     Dates: start: 20250513
  168. DIPHENHYDRAMINE HYDROCHLORIDE\LIDOCAINE HYDROCHLORIDE\NYSTATIN [Concomitant]
     Active Substance: DIPHENHYDRAMINE HYDROCHLORIDE\LIDOCAINE HYDROCHLORIDE\NYSTATIN
     Dosage: 15 MILLILITER, FOUR TIMES/DAY
     Route: 048
     Dates: start: 20250828, end: 20250831
  169. CHLORHEXIDINE [Concomitant]
     Active Substance: CHLORHEXIDINE
     Indication: Product used for unknown indication
     Dosage: UNK
     Route: 065
     Dates: start: 20250609, end: 20250618
  170. CHLORHEXIDINE [Concomitant]
     Active Substance: CHLORHEXIDINE
     Dosage: 15 MILLILITER
     Route: 048
     Dates: start: 20250917
  171. POTASSIUM CHLORIDE [Concomitant]
     Active Substance: POTASSIUM CHLORIDE
     Indication: Product used for unknown indication
     Dosage: UNK (40 MEQ, AS NEEDED)
     Route: 048
     Dates: start: 20250513
  172. POTASSIUM CHLORIDE [Concomitant]
     Active Substance: POTASSIUM CHLORIDE
     Dosage: UNK (20 MEQ, AS NEEDED)
     Route: 042
     Dates: start: 20250813, end: 20250815
  173. POTASSIUM CHLORIDE [Concomitant]
     Active Substance: POTASSIUM CHLORIDE
     Dosage: UNK (10 MEQ, AS NEEDED)
     Route: 048
     Dates: start: 20250813, end: 20250815
  174. POTASSIUM CHLORIDE [Concomitant]
     Active Substance: POTASSIUM CHLORIDE
     Dosage: UNK (20-40 MEQ, AS NEEDED)
     Route: 048
     Dates: start: 20250827, end: 20250831
  175. POTASSIUM CHLORIDE [Concomitant]
     Active Substance: POTASSIUM CHLORIDE
     Dosage: UNK (20 MEQ, AS NEEDED)
     Route: 048
     Dates: start: 20250911, end: 20250911
  176. POTASSIUM CHLORIDE [Concomitant]
     Active Substance: POTASSIUM CHLORIDE
     Dosage: 20 MICROEQUIVALENT, DAILY
     Route: 048
     Dates: start: 20250917
  177. FLUCONAZOLE [Concomitant]
     Active Substance: FLUCONAZOLE
     Indication: Product used for unknown indication
     Dosage: 400 MILLIGRAM, DAILY
     Route: 042
     Dates: start: 20250524, end: 20250525
  178. CHLORHEXIDINE [Concomitant]
     Active Substance: CHLORHEXIDINE
     Indication: Product used for unknown indication
     Dosage: 15 MILLILITER, TWO TIMES A DAY
     Route: 048
     Dates: start: 20250626, end: 20250627
  179. MENTHOL [Concomitant]
     Active Substance: MENTHOL
     Indication: Product used for unknown indication
     Dosage: UNK (1 AS NEEDED)
     Route: 048
     Dates: start: 20250626
  180. LANTUS [Concomitant]
     Active Substance: INSULIN GLARGINE
     Indication: Product used for unknown indication
     Dosage: 20 INTERNATIONAL UNIT, DAILY
     Route: 058
     Dates: start: 20250514, end: 20250520
  181. LUMASON [Concomitant]
     Active Substance: SULFUR HEXAFLUORIDE
     Indication: Product used for unknown indication
     Dosage: 3 MILLILITER, AS NECESSARY
     Route: 042
     Dates: start: 20250811
  182. HEPARIN [Concomitant]
     Active Substance: HEPARIN SODIUM
     Indication: Product used for unknown indication
     Dosage: 15 MILLIGRAM
     Route: 042
     Dates: start: 20250811, end: 20250812
  183. HEPARIN [Concomitant]
     Active Substance: HEPARIN SODIUM
     Dosage: UNK UNK, ONCE A DAY ( 8 UNITS)
     Route: 042
     Dates: start: 20250811, end: 20250811
  184. HEPARIN [Concomitant]
     Active Substance: HEPARIN SODIUM
     Dosage: UNK  ( 6-9 UNITS)
     Route: 042
     Dates: start: 20250812, end: 20250813
  185. OXYGEN [Concomitant]
     Active Substance: OXYGEN
     Indication: Product used for unknown indication
     Dosage: 2 LITER
     Route: 045
     Dates: start: 20250811, end: 20250819
  186. CEFTRIAXONE [Concomitant]
     Active Substance: CEFTRIAXONE
     Indication: Product used for unknown indication
     Dosage: 1 GRAM, ONCE A DAY
     Route: 042
     Dates: start: 20250826, end: 20250829
  187. VANCOMYCIN [Concomitant]
     Active Substance: VANCOMYCIN
     Indication: Product used for unknown indication
     Dosage: 125 MILLIGRAM, FOUR TIMES/DAY
     Route: 048
     Dates: start: 20250817
  188. APIXABAN [Concomitant]
     Active Substance: APIXABAN
     Indication: Product used for unknown indication
     Dosage: 5 MILLIGRAM, TWO TIMES A DAY
     Route: 048
     Dates: start: 20250819
  189. DIPHENHYDRAMINE [Concomitant]
     Active Substance: DIPHENHYDRAMINE
     Indication: Prophylaxis
     Dosage: 25 MILLIGRAM, ONCE A DAY
     Route: 048
     Dates: start: 20250826
  190. CALCIUM POLYCARBOPHIL [Concomitant]
     Active Substance: CALCIUM POLYCARBOPHIL
     Indication: Product used for unknown indication
     Dosage: 1250 MILLIGRAM, ONCE A DAY
     Route: 048
     Dates: start: 20250827
  191. VENELEX [Concomitant]
     Active Substance: BALSAM PERU\CASTOR OIL
     Indication: Product used for unknown indication
     Dosage: 1 DOSAGE FORM, TWO TIMES A DAY
     Route: 061
     Dates: start: 20250827
  192. GADOTERATE MEGLUMINE [Concomitant]
     Active Substance: GADOTERATE MEGLUMINE
     Indication: Product used for unknown indication
     Dosage: 15.3 MILLILITER, ONCE A DAY
     Route: 042
     Dates: start: 20250918, end: 20250918
  193. Menthol;Zinc [Concomitant]
     Indication: Prophylaxis
     Dosage: 0.44 PERCENT, TWO TIMES A DAY
     Route: 061
     Dates: start: 20250811, end: 20250916
  194. SODIUM CHLORIDE [Concomitant]
     Active Substance: SODIUM CHLORIDE
     Indication: Fluid replacement
     Dosage: 75 MILLILITER
     Route: 042
     Dates: start: 20250811
  195. POTASSIUM CHLORIDE [Concomitant]
     Active Substance: POTASSIUM CHLORIDE
     Indication: Hypokalaemia
     Dosage: 50 MILLILITER, AS NECESSARY
     Route: 042
     Dates: start: 20250827, end: 20250831
  196. POTASSIUM CHLORIDE [Concomitant]
     Active Substance: POTASSIUM CHLORIDE
     Dosage: 100 MILLILITER, AS NECESSARY
     Route: 042
     Dates: start: 20250827, end: 20250831
  197. FOLIC ACID [Concomitant]
     Active Substance: FOLIC ACID
     Indication: T-cell lymphoma stage III
  198. HYDROMORPHONE [Concomitant]
     Active Substance: HYDROMORPHONE
     Indication: Abdominal pain
     Dosage: 0.3 MILLIGRAM, AS NECESSARY
     Route: 042
     Dates: start: 20250829, end: 20250831
  199. PANTOPRAZOLE [Concomitant]
     Active Substance: PANTOPRAZOLE
     Indication: Gastrooesophageal reflux disease
     Dosage: 40 MILLIGRAM, TWO TIMES A DAY
     Route: 042
     Dates: start: 20250828, end: 20250831
  200. VALACYCLOVIR [Concomitant]
     Active Substance: VALACYCLOVIR HYDROCHLORIDE
     Indication: Antiviral prophylaxis
     Dosage: 500 MILLIGRAM, TWO TIMES A DAY
     Route: 048
     Dates: start: 20250828, end: 20250828
  201. VALACYCLOVIR [Concomitant]
     Active Substance: VALACYCLOVIR HYDROCHLORIDE
     Dosage: 1000 MILLIGRAM, TWO TIMES A DAY
     Route: 048
     Dates: start: 20250830, end: 20250831
  202. VALACYCLOVIR [Concomitant]
     Active Substance: VALACYCLOVIR HYDROCHLORIDE
     Dosage: 1000 MILLIGRAM, TWO TIMES A DAY
     Route: 048
     Dates: start: 20250831
  203. ESOMEPRAZOLE [Concomitant]
     Active Substance: ESOMEPRAZOLE
     Indication: Gastrooesophageal reflux disease
     Dosage: 40 MILLIGRAM, DAILY
     Route: 048
     Dates: start: 20250831
  204. HYOSCYAMINE [Concomitant]
     Active Substance: HYOSCYAMINE
     Indication: Abdominal pain
     Dosage: 0.125 MILLIGRAM, FOUR TIMES/DAY
     Route: 048
     Dates: start: 20250831
  205. LACTOBACILLUS ACIDOPHILUS [Concomitant]
     Active Substance: LACTOBACILLUS ACIDOPHILUS
     Indication: Supplementation therapy
     Dosage: 1 DOSAGE FORM, TWO TIMES A DAY
     Route: 048
     Dates: start: 20250831
  206. OXYCODONE [Concomitant]
     Active Substance: OXYCODONE
     Indication: Abdominal pain
     Dosage: (5-325 MILLIGRAM AS NECESSARY)
     Route: 048
     Dates: start: 20250829
  207. DIAZEPAM [Concomitant]
     Active Substance: DIAZEPAM
     Indication: Sedative therapy
     Dosage: 5 MILLIGRAM, ONCE A DAY
     Route: 042
     Dates: start: 20250917, end: 20250917
  208. PHOSPHORUS [Concomitant]
     Active Substance: PHOSPHORUS
     Indication: Hypophosphataemia
     Dosage: 2 DOSAGE FORM, AS NECESSARY
     Route: 048
     Dates: start: 20250917
  209. METRONIDAZOLE [Concomitant]
     Active Substance: METRONIDAZOLE
     Indication: Febrile neutropenia
     Dosage: 500 MILLIGRAM, 3 TIMES A DAY
     Route: 042
     Dates: start: 20250917
  210. LACTATED RINGERS SOLUTION [Concomitant]
     Active Substance: CALCIUM CHLORIDE\POTASSIUM CHLORIDE\SODIUM CHLORIDE\SODIUM LACTATE
     Indication: Fluid replacement
     Dosage: 1779 MILLILITER
     Route: 040
     Dates: start: 20250917, end: 20250917
  211. ATORVASTATIN [Concomitant]
     Active Substance: ATORVASTATIN
     Indication: Hyperlipidaemia
     Dosage: 40 MILLIGRAM, DAILY
     Route: 048
     Dates: start: 20250917
  212. RAMELTEON [Concomitant]
     Active Substance: RAMELTEON
     Indication: Insomnia
     Dosage: 8 MILLIGRAM, DAILY
     Route: 048
     Dates: start: 20250917
  213. FLUCONAZOLE [Concomitant]
     Active Substance: FLUCONAZOLE
     Indication: Febrile neutropenia
     Dosage: 400 MILLIGRAM, DAILY
     Route: 042
     Dates: start: 20250918

REACTIONS (51)
  - Febrile neutropenia [Recovered/Resolved]
  - Failure to thrive [Recovered/Resolved]
  - Seizure [Not Recovered/Not Resolved]
  - Embolism [Recovered/Resolved]
  - Syncope [Recovered/Resolved]
  - Diarrhoea [Recovered/Resolved with Sequelae]
  - Anaemia [Recovered/Resolved]
  - Asthenia [Recovering/Resolving]
  - Thrombocytopenia [Recovered/Resolved with Sequelae]
  - Hypokalaemia [Recovered/Resolved]
  - Rectal haemorrhage [Recovered/Resolved]
  - Abdominal pain [Not Recovered/Not Resolved]
  - Acute kidney injury [Not Recovered/Not Resolved]
  - Stomatitis [Not Recovered/Not Resolved]
  - Hypocalcaemia [Not Recovered/Not Resolved]
  - Hyperglycaemia [Recovered/Resolved]
  - Lice infestation [Recovered/Resolved]
  - Decreased appetite [Not Recovered/Not Resolved]
  - Dehydration [Recovered/Resolved]
  - Conjunctivitis [Not Recovered/Not Resolved]
  - Cough [Not Recovered/Not Resolved]
  - Oedema peripheral [Not Recovered/Not Resolved]
  - Hypophosphataemia [Recovered/Resolved]
  - Nausea [Recovered/Resolved]
  - Haematuria [Recovered/Resolved]
  - Hypertension [Not Recovered/Not Resolved]
  - Hypercholesterolaemia [Not Recovered/Not Resolved]
  - Pain in extremity [Not Recovered/Not Resolved]
  - Ulcer [Not Recovered/Not Resolved]
  - Fall [Recovered/Resolved]
  - Skin abrasion [Recovering/Resolving]
  - Skin laceration [Not Recovered/Not Resolved]
  - Decubitus ulcer [Not Recovered/Not Resolved]
  - Osteoarthritis [Not Recovered/Not Resolved]
  - Chills [Unknown]
  - Hypotension [Recovered/Resolved]
  - Weight decreased [Not Recovered/Not Resolved]
  - Sinus tachycardia [Not Recovered/Not Resolved]
  - Dyspnoea [Recovered/Resolved]
  - Wheezing [Recovered/Resolved]
  - Blood creatine increased [Recovered/Resolved]
  - Blood alkaline phosphatase increased [Not Recovered/Not Resolved]
  - Muscular weakness [Not Recovered/Not Resolved]
  - Urinary tract infection [Not Recovered/Not Resolved]
  - Urinary incontinence [Not Recovered/Not Resolved]
  - Vomiting [Recovered/Resolved]
  - Gastrooesophageal reflux disease [Not Recovered/Not Resolved]
  - Confusional state [Recovered/Resolved]
  - Fatigue [Not Recovered/Not Resolved]
  - Cystitis [Not Recovered/Not Resolved]
  - Cerebrovascular accident [Recovered/Resolved with Sequelae]

NARRATIVE: CASE EVENT DATE: 20250422
